FAERS Safety Report 8009532-0 (Version None)
Quarter: 2011Q4

REPORT INFORMATION
  Report Type: 
  Country: None (occurrence: None)
  Receive Date: 20111227
  Receipt Date: 20111223
  Transmission Date: 20120403
  Serious: Yes (Life-Threatening, Hospitalization)
  Sender: FDA-Public Use
  Company Number: IT-ASTRAZENECA-2011SE75122

PATIENT
  Sex: Male

DRUGS (11)
  1. OMEPRAZOLE [Suspect]
     Indication: ABDOMINAL PAIN UPPER
     Route: 048
     Dates: start: 20110802, end: 20110816
  2. CLOPIDOGREL [Concomitant]
     Route: 048
  3. BISOPROLOL FUMARATE [Concomitant]
     Route: 048
  4. FUROSEMIDE [Concomitant]
     Route: 048
  5. VALSARTAN [Concomitant]
     Route: 048
  6. CORTISONIC DRUG (NOT SPECIFIED) [Concomitant]
     Indication: ARTHRITIS
  7. CEFIXIME [Concomitant]
     Indication: PYREXIA
  8. FLUCONAZOLE [Concomitant]
     Indication: ORAL CANDIDIASIS
  9. CARBAMAZEPINE [Concomitant]
     Route: 048
  10. TOPIRAMATE [Concomitant]
     Route: 048
  11. ALLOPURINOL [Concomitant]
     Indication: HYPERURICAEMIA

REACTIONS (1)
  - ISCHAEMIC STROKE [None]
